FAERS Safety Report 8804377 (Version 2)
Quarter: 2012Q4

REPORT INFORMATION
  Report Type: 
  Country: US (occurrence: US)
  Receive Date: 20120924
  Receipt Date: 20121004
  Transmission Date: 20130627
  Serious: Yes (Hospitalization)
  Sender: FDA-Public Use
  Company Number: US-BAYER-2012-097665

PATIENT
  Age: 20 Year
  Sex: Female

DRUGS (7)
  1. YAZ [Suspect]
  2. YASMIN [Suspect]
  3. OCELLA [Suspect]
  4. ALBUTEROL SULFATE [Concomitant]
     Indication: COUGH
     Dosage: 90 ?g, 2 puffs as directed
     Dates: start: 20081118
  5. PREDNISONE [Concomitant]
     Indication: COUGH
     Dosage: 20 mg, UNK
     Dates: start: 20081118
  6. XANAX [Concomitant]
     Indication: PANIC ATTACK
     Dosage: 0.5 mg, UNK
  7. PAXIL [Concomitant]
     Indication: ANXIETY

REACTIONS (3)
  - Pulmonary embolism [None]
  - Deep vein thrombosis [None]
  - Injury [None]
